FAERS Safety Report 23474542 (Version 1)
Quarter: 2024Q1

REPORT INFORMATION
  Report Type: Spontaneous
  Country: BR (occurrence: BR)
  Receive Date: 20240204
  Receipt Date: 20240204
  Transmission Date: 20240409
  Serious: Yes (Other)
  Sender: FDA-Public Use
  Company Number: BR-EXELIXIS-CABO-23063204

PATIENT
  Sex: Female

DRUGS (4)
  1. CABOMETYX [Suspect]
     Active Substance: CABOZANTINIB S-MALATE
     Indication: Renal cell carcinoma
     Dosage: 40 MG, QOD (40 MG, DOSAGE ADJUSTMENT WAS MADE TO 40 MG EVERY OTHER DAY)
     Route: 065
     Dates: start: 202209
  2. NIVOLUMAB [Suspect]
     Active Substance: NIVOLUMAB
     Indication: Renal cell carcinoma
     Dosage: UNK
     Route: 065
  3. SUNITINIB [Concomitant]
     Active Substance: SUNITINIB
     Dosage: UNK
  4. IPILIMUMAB [Concomitant]
     Active Substance: IPILIMUMAB
     Dosage: UNK

REACTIONS (3)
  - Hypertension [Unknown]
  - Diarrhoea [Unknown]
  - Taste disorder [Unknown]
